FAERS Safety Report 8488421-1 (Version None)
Quarter: 2012Q3

REPORT INFORMATION
  Report Type: 
  Country: None (occurrence: None)
  Receive Date: 20120705
  Receipt Date: 20120626
  Transmission Date: 20120928
  Serious: Yes (Hospitalization, Other)
  Sender: FDA-Public Use
  Company Number: CA-UCBSA-053369

PATIENT
  Age: 43 Year
  Sex: Female
  Weight: 65.27 kg

DRUGS (17)
  1. PREDNISONE [Concomitant]
     Route: 048
     Dates: start: 20120301
  2. OMEPRAZOLE (PRISOLEC) [Concomitant]
     Indication: PROPHYLAXIS AGAINST GASTROINTESTINAL ULCER
     Route: 048
  3. PLAQUENIL [Concomitant]
     Indication: INFLAMMATION
     Route: 048
     Dates: start: 20110812
  4. TYLENOL W/ CODEINE NO. 3 [Concomitant]
     Indication: RHEUMATOID ARTHRITIS
     Dosage: I-II TABS ONCE IN 4 TO 6 HOURS AS NECESSARY
     Route: 048
     Dates: start: 20110101
  5. DILANTIN [Concomitant]
     Indication: EPILEPSY
     Route: 048
     Dates: start: 19860101
  6. ACTONEL [Concomitant]
     Indication: OSTEOPOROSIS
     Route: 048
  7. VITAMIN D [Concomitant]
     Indication: VITAMIN SUPPLEMENTATION
     Route: 048
  8. PREDNISONE [Concomitant]
     Indication: INFLAMMATION
     Route: 048
     Dates: start: 20120130
  9. LEVOTHYROXINE SODIUM [Concomitant]
     Indication: HYPOTHYROIDISM
     Route: 048
     Dates: start: 19940101
  10. ACTONEL DR [Concomitant]
     Indication: BONE DISORDER
     Route: 048
     Dates: start: 20111215
  11. LEVOTHYROXINE SODIUM [Concomitant]
     Route: 048
  12. CIMZIA [Suspect]
     Route: 058
     Dates: start: 20120409
  13. PLAQUENIL [Concomitant]
     Indication: RHEUMATOID ARTHRITIS
     Route: 048
     Dates: start: 20110812
  14. PREDNISONE [Concomitant]
     Route: 048
     Dates: start: 20120301
  15. SLOW FE [Concomitant]
     Indication: MINERAL SUPPLEMENTATION
     Dosage: 1 TABLET ONCE DAILY
     Route: 048
  16. CIMZIA [Suspect]
     Indication: RHEUMATOID ARTHRITIS
     Route: 058
     Dates: start: 20120227, end: 20120326
  17. PREDNISONE [Concomitant]
     Indication: RHEUMATOID ARTHRITIS
     Route: 048
     Dates: start: 20120130

REACTIONS (17)
  - DIARRHOEA [None]
  - VERTIGO [None]
  - COUGH [None]
  - PARAESTHESIA [None]
  - FALL [None]
  - HEADACHE [None]
  - DIZZINESS [None]
  - DEHYDRATION [None]
  - FATIGUE [None]
  - UPPER RESPIRATORY TRACT INFECTION [None]
  - PALPITATIONS [None]
  - BALANCE DISORDER [None]
  - FEELING ABNORMAL [None]
  - DISORIENTATION [None]
  - DEPRESSED LEVEL OF CONSCIOUSNESS [None]
  - PYREXIA [None]
  - HYPOAESTHESIA [None]
